FAERS Safety Report 7725498-2 (Version None)
Quarter: 2011Q3

REPORT INFORMATION
  Report Type: 
  Country: None (occurrence: None)
  Receive Date: 20110902
  Receipt Date: 20110719
  Transmission Date: 20111222
  Serious: No
  Sender: FDA-Public Use
  Company Number: US-BRISTOL-MYERS SQUIBB COMPANY-15846405

PATIENT
  Age: 55 Year
  Sex: Male

DRUGS (2)
  1. GLYBURIDE AND METFORMIN HYDROCHLORIDE [Suspect]
  2. KOMBIGLYZE XR [Suspect]
     Indication: DIABETES MELLITUS
     Route: 048
     Dates: start: 20110501

REACTIONS (1)
  - DIARRHOEA [None]
